FAERS Safety Report 4289379-1 (Version None)
Quarter: 2004Q1

REPORT INFORMATION
  Report Type: 
  Country: None (occurrence: None)
  Receive Date: 20040204
  Receipt Date: 20030509
  Transmission Date: 20041129
  Serious: No
  Sender: FDA-Public Use
  Company Number: 03H-163-0218792-00

PATIENT
  Sex: Male

DRUGS (1)
  1. ABBOKINASE [Suspect]

REACTIONS (2)
  - CEREBROVASCULAR ACCIDENT [None]
  - HAEMORRHAGE [None]
